FAERS Safety Report 12095360 (Version 1)
Quarter: 2016Q1

REPORT INFORMATION
  Report Type: Spontaneous
  Country: CA (occurrence: CA)
  Receive Date: 20160219
  Receipt Date: 20160219
  Transmission Date: 20160526
  Serious: Yes (Congenital Anomaly)
  Sender: FDA-Public Use
  Company Number: CA-EAGLE PHARMACEUTICALS, INC.-ELL201602-000037

PATIENT

DRUGS (1)
  1. DICLOFENAC SODIUM AND MISOPROSTOL [Suspect]
     Active Substance: DICLOFENAC SODIUM\MISOPROSTOL

REACTIONS (4)
  - Hepatosplenomegaly neonatal [Unknown]
  - Foetal exposure during pregnancy [Unknown]
  - Congenital pulmonary hypertension [Unknown]
  - Persistent foetal circulation [Unknown]
